FAERS Safety Report 10637822 (Version 1)
Quarter: 2014Q4

REPORT INFORMATION
  Report Type: Spontaneous
  Country: SE (occurrence: SE)
  Receive Date: 20141208
  Receipt Date: 20141208
  Transmission Date: 20150529
  Serious: Yes (Other)
  Sender: FDA-Public Use
  Company Number: SE-MYLANLABS-2014M1012353

PATIENT

DRUGS (9)
  1. CALCIUM-SANDOZ                     /00751528/ [Concomitant]
     Dosage: UNK
  2. ETALPHA [Concomitant]
     Active Substance: ALFACALCIDOL
     Dosage: UNK
  3. BETNOVAT                           /00008501/ [Concomitant]
     Dosage: UNK
  4. AZATHIOPRINE. [Suspect]
     Active Substance: AZATHIOPRINE
     Indication: AUTOIMMUNE HEPATITIS
     Dosage: UNK, TID
     Route: 048
     Dates: start: 20140811, end: 20140902
  5. SEROXAT [Concomitant]
     Active Substance: PAROXETINE HYDROCHLORIDE
     Dosage: UNK
  6. RINEXIN [Concomitant]
     Active Substance: PHENYLPROPANOLAMINE
     Dosage: UNK
  7. TRADOLAN [Concomitant]
     Active Substance: TRAMADOL
     Dosage: UNK
  8. COCILLANA                          /00270901/ [Concomitant]
     Dosage: UNK
  9. ALVEDON [Concomitant]
     Active Substance: ACETAMINOPHEN
     Dosage: UNK

REACTIONS (4)
  - Vomiting [Recovered/Resolved]
  - Blood creatinine increased [Recovered/Resolved]
  - Urticaria [Recovered/Resolved]
  - Nausea [Recovered/Resolved]

NARRATIVE: CASE EVENT DATE: 20140829
